FAERS Safety Report 18710625 (Version 1)
Quarter: 2021Q1

REPORT INFORMATION
  Report Type: Spontaneous
  Country: IT (occurrence: IT)
  Receive Date: 20210107
  Receipt Date: 20210107
  Transmission Date: 20210419
  Serious: Yes (Hospitalization, Other)
  Sender: FDA-Public Use
  Company Number: IT-AUROBINDO-AUR-APL-2021-000122

PATIENT
  Age: 35 Year
  Sex: Male

DRUGS (3)
  1. MEROPENEM POWDER FOR SOLUTION FOR INFUSION [Suspect]
     Active Substance: MEROPENEM
     Indication: PNEUMONIA
     Dosage: 3 GRAM, ONCE A DAY
     Route: 042
     Dates: start: 20201210, end: 20201216
  2. FENTANYL. [Suspect]
     Active Substance: FENTANYL
     Indication: PAIN
     Dosage: 50 MICROGRAM, ONCE A DAY
     Route: 042
     Dates: start: 20201212, end: 20201218
  3. TRAMADOL. [Suspect]
     Active Substance: TRAMADOL
     Indication: PAIN
     Dosage: 150 MILLIGRAM, ONCE A DAY
     Route: 048
     Dates: start: 20201202

REACTIONS (2)
  - Seizure [Recovered/Resolved]
  - Hyponatraemia [Recovered/Resolved]

NARRATIVE: CASE EVENT DATE: 20201216
